FAERS Safety Report 4791789-0 (Version None)
Quarter: 2005Q4

REPORT INFORMATION
  Report Type: 
  Country: None (occurrence: None)
  Receive Date: 20051007
  Receipt Date: 20050823
  Transmission Date: 20060501
  Serious: Yes (Other)
  Sender: FDA-Public Use
  Company Number: GB-BRISTOL-MYERS SQUIBB COMPANY-13097258

PATIENT
  Age: 50 Year
  Sex: Female

DRUGS (7)
  1. ABILIFY [Suspect]
     Indication: PSYCHOTIC DISORDER
     Route: 048
     Dates: start: 20050818
  2. FLUOXETINE [Concomitant]
     Indication: OBSESSIVE-COMPULSIVE DISORDER
     Dosage: DURATION OF THERAPY:  3 TO 4 YEARS
     Route: 048
  3. WARFARIN [Concomitant]
     Route: 048
  4. PROPRANOLOL [Concomitant]
     Dosage: DURATION OF THERAPY:  YEARS
     Route: 048
  5. DISOPYRAMIDE [Concomitant]
     Route: 048
  6. LIPITOR [Concomitant]
     Route: 048
  7. CO-DYDRAMOL [Concomitant]

REACTIONS (5)
  - ACCIDENTAL OVERDOSE [None]
  - DIZZINESS [None]
  - FATIGUE [None]
  - SOMNOLENCE [None]
  - STOMACH DISCOMFORT [None]
